FAERS Safety Report 11266294 (Version 1)
Quarter: 2015Q3

REPORT INFORMATION
  Report Type: Spontaneous
  Country: US (occurrence: US)
  Receive Date: 20150713
  Receipt Date: 20150713
  Transmission Date: 20151125
  Serious: No
  Sender: FDA-Public Use
  Company Number: US-BAYER-2015-376688

PATIENT
  Age: 91 Year
  Sex: Female
  Weight: 56.69 kg

DRUGS (2)
  1. CLARITIN [Suspect]
     Active Substance: LORATADINE
     Indication: PERIPHERAL SWELLING
     Dosage: 1 DF, PRN
     Route: 048
     Dates: end: 20150709
  2. CLARITIN [Suspect]
     Active Substance: LORATADINE
     Indication: PRURITUS

REACTIONS (1)
  - Product use issue [Unknown]
